FAERS Safety Report 26122545 (Version 1)
Quarter: 2025Q4

REPORT INFORMATION
  Report Type: Spontaneous
  Country: US (occurrence: US)
  Receive Date: 20251204
  Receipt Date: 20251204
  Transmission Date: 20260119
  Serious: Yes (Other)
  Sender: ABBVIE
  Company Number: US-ABBVIE-6575538

PATIENT
  Age: 53 Year
  Sex: Female

DRUGS (2)
  1. LATISSE [Suspect]
     Active Substance: BIMATOPROST
     Indication: Growth of eyelashes
     Route: 061
     Dates: start: 20251024, end: 20251103
  2. LATISSE [Suspect]
     Active Substance: BIMATOPROST
     Route: 061
     Dates: start: 20250801, end: 20250901

REACTIONS (6)
  - Surgery [Recovered/Resolved]
  - Eye pain [Unknown]
  - Ocular hyperaemia [Recovered/Resolved]
  - Periorbital swelling [Unknown]
  - Eye swelling [Unknown]
  - Eye irritation [Unknown]

NARRATIVE: CASE EVENT DATE: 20250926
